FAERS Safety Report 8260940-2 (Version None)
Quarter: 2012Q2

REPORT INFORMATION
  Report Type: 
  Country: None (occurrence: None)
  Receive Date: 20120402
  Receipt Date: 20120316
  Transmission Date: 20120825
  Serious: Yes (Other)
  Sender: FDA-Public Use
  Company Number: 2012P1009932

PATIENT
  Sex: Female

DRUGS (1)
  1. OXYTOCIN [Suspect]
     Dates: start: 20060101

REACTIONS (1)
  - UTERINE RUPTURE [None]
